FAERS Safety Report 22064432 (Version 1)
Quarter: 2023Q1

REPORT INFORMATION
  Report Type: Spontaneous
  Country: US (occurrence: US)
  Receive Date: 20230306
  Receipt Date: 20230306
  Transmission Date: 20230418
  Serious: Yes (Other)
  Sender: FDA-Public Use
  Company Number: US-PFIZER INC-PV202300041681

PATIENT
  Age: 68 Year
  Sex: Female

DRUGS (1)
  1. XELJANZ [Suspect]
     Active Substance: TOFACITINIB CITRATE
     Dosage: UNK

REACTIONS (6)
  - Haemorrhage [Unknown]
  - Traumatic haemorrhage [Unknown]
  - Skin laceration [Unknown]
  - Urinary tract infection [Unknown]
  - Product dose omission in error [Unknown]
  - Memory impairment [Unknown]
